FAERS Safety Report 21184731 (Version 1)
Quarter: 2022Q3

REPORT INFORMATION
  Report Type: Spontaneous
  Country: US (occurrence: None)
  Receive Date: 20220805
  Receipt Date: 20220805
  Transmission Date: 20221026
  Serious: Yes (Other)
  Sender: FDA-Public Use
  Company Number: None

PATIENT
  Age: 25 Year
  Sex: Male
  Weight: 80.1 kg

DRUGS (1)
  1. CABOTEGRAVIR [Suspect]
     Active Substance: CABOTEGRAVIR
     Indication: Prophylaxis against HIV infection
     Dosage: OTHER QUANTITY : 1 TEASPOON(S);?FREQUENCY : MONTHLY;?
     Route: 030
     Dates: start: 20220802

REACTIONS (2)
  - Musculoskeletal pain [None]
  - Swelling [None]

NARRATIVE: CASE EVENT DATE: 20220805
